FAERS Safety Report 8682411 (Version 3)
Quarter: 2013Q4

REPORT INFORMATION
  Report Type: Spontaneous
  Country: US (occurrence: US)
  Receive Date: 20120725
  Receipt Date: 20131016
  Transmission Date: 20140711
  Serious: No
  Sender: FDA-Public Use
  Company Number: US-ASTRAZENECA-2012SE45269

PATIENT
  Age: 62 Year
  Sex: Male
  Weight: 78.5 kg

DRUGS (6)
  1. SYMBICORT PMDI [Suspect]
     Indication: CHRONIC OBSTRUCTIVE PULMONARY DISEASE
     Dosage: 160/4.5, TWO PUFFS, BID
     Route: 055
     Dates: start: 2003
  2. FUROSEMIDE [Concomitant]
     Indication: DIURETIC THERAPY
     Route: 048
     Dates: start: 2007
  3. ALBUTEROL ER [Concomitant]
     Route: 048
  4. ALBUTEROL SULFATE [Concomitant]
     Indication: DYSPNOEA
     Dosage: QID
     Route: 055
  5. POTASSIUM [Concomitant]
     Route: 048
  6. COMBIVENT [Concomitant]

REACTIONS (6)
  - Adverse event [Unknown]
  - Dyspnoea [Unknown]
  - Bronchospasm [Unknown]
  - Intentional drug misuse [Unknown]
  - Sputum retention [Unknown]
  - Drug dose omission [Unknown]
